FAERS Safety Report 20259132 (Version 1)
Quarter: 2021Q4

REPORT INFORMATION
  Report Type: Spontaneous
  Country: IN (occurrence: IN)
  Receive Date: 20211230
  Receipt Date: 20211230
  Transmission Date: 20220304
  Serious: Yes (Other)
  Sender: FDA-Public Use
  Company Number: IN-LUPIN PHARMACEUTICALS INC.-2021-25892

PATIENT
  Age: 63 Year
  Sex: Male

DRUGS (3)
  1. TRAMADOL [Suspect]
     Active Substance: TRAMADOL
     Indication: Pancreatitis chronic
     Dosage: UNK
     Route: 042
  2. FENTANYL [Suspect]
     Active Substance: FENTANYL
     Indication: Pancreatitis chronic
     Dosage: UNK
     Route: 042
  3. ACETAMINOPHEN [Suspect]
     Active Substance: ACETAMINOPHEN
     Indication: Pancreatitis chronic
     Dosage: UNK
     Route: 042

REACTIONS (1)
  - Drug ineffective [Unknown]
